FAERS Safety Report 5250114-1 (Version None)
Quarter: 2007Q1

REPORT INFORMATION
  Report Type: 
  Country: None (occurrence: None)
  Receive Date: 20061201
  Receipt Date: 20060821
  Transmission Date: 20070707
  Serious: No
  Sender: FDA-Public Use
  Company Number: 2006PV019869

PATIENT
  Age: 62 Year
  Sex: Female
  Weight: 92.9874 kg

DRUGS (4)
  1. BYETTA [Suspect]
     Indication: DIABETES MELLITUS NON-INSULIN-DEPENDENT
     Dosage: 5 MCG BID SC
     Route: 058
     Dates: start: 20060601
  2. SPIRONOLACTONE [Suspect]
     Indication: DRUG USE FOR UNKNOWN INDICATION
     Dates: start: 20060801
  3. GLUCOPHAGE [Concomitant]
  4. LASIX [Concomitant]

REACTIONS (3)
  - NAUSEA [None]
  - SALIVARY HYPERSECRETION [None]
  - VOMITING [None]
